FAERS Safety Report 18144741 (Version 1)
Quarter: 2020Q3

REPORT INFORMATION
  Report Type: Spontaneous
  Country: US (occurrence: US)
  Receive Date: 20200812
  Receipt Date: 20200812
  Transmission Date: 20201103
  Serious: No
  Sender: FDA-Public Use
  Company Number: None

PATIENT
  Sex: Female

DRUGS (10)
  1. PROGESTERONE. [Concomitant]
     Active Substance: PROGESTERONE
  2. GONA?FRFF [Concomitant]
  3. ESTRADIOL. [Concomitant]
     Active Substance: ESTRADIOL
  4. OVIDREL [Concomitant]
     Active Substance: CHORIOGONADOTROPIN ALFA
  5. PRENATAL/FA [Concomitant]
  6. DOXYCYCLINE HYCLATE. [Concomitant]
     Active Substance: DOXYCYCLINE HYCLATE
  7. ENDOMETRIN [Concomitant]
     Active Substance: PROGESTERONE
  8. CETROTIDE [Suspect]
     Active Substance: CETRORELIX ACETATE
     Indication: INFERTILITY FEMALE
     Dosage: ?          OTHER DOSE:1 SYR;?
     Route: 058
     Dates: start: 20200707
  9. MENOPUR [Concomitant]
     Active Substance: FOLLITROPIN\LUTEINIZING HORMONE
  10. CLOMIPHENE [Concomitant]
     Active Substance: CLOMIPHENE

REACTIONS (2)
  - Injection site pruritus [None]
  - Injection site erythema [None]
